FAERS Safety Report 8829365 (Version 2)
Quarter: 2012Q4

REPORT INFORMATION
  Report Type: 
  Country: US (occurrence: US)
  Receive Date: 20121009
  Receipt Date: 20121029
  Transmission Date: 20130627
  Serious: Yes (Other)
  Sender: FDA-Public Use
  Company Number: US-AMGEN-USASP2012063252

PATIENT
  Age: 74 Year
  Sex: Male
  Weight: 82.04 kg

DRUGS (9)
  1. ENBREL [Suspect]
     Indication: RHEUMATOID ARTHRITIS
     Dosage: 50 mg, qwk
     Route: 058
     Dates: start: 2008, end: 201209
  2. ENBREL [Suspect]
     Indication: ANKYLOSING SPONDYLITIS
  3. AMITRIPTYLINE [Concomitant]
     Indication: SLEEP DISORDER
     Dosage: 50 mg, qhs
     Route: 048
     Dates: start: 20111219
  4. AMITRIPTYLINE [Concomitant]
     Indication: PAIN
  5. DETROL LA [Concomitant]
     Indication: URINARY INCONTINENCE
     Dosage: 4 mg, qd
     Route: 048
     Dates: start: 20120912
  6. DOXYCYCLINE [Concomitant]
     Dosage: 100 mg, bid
     Route: 048
     Dates: start: 201209
  7. FLOMAX                             /01280302/ [Concomitant]
     Indication: BENIGN PROSTATIC HYPERPLASIA
     Dosage: 0.4 mg, qd
     Route: 048
     Dates: start: 201209
  8. FLUCONAZOLE [Concomitant]
     Dosage: 200 mg, bid
     Dates: start: 201110
  9. LOVENOX [Concomitant]
     Indication: ANTIPHOSPHOLIPID ANTIBODIES
     Dosage: 1.5 mg, qd
     Route: 058
     Dates: start: 201111

REACTIONS (4)
  - Acute myeloid leukaemia [Not Recovered/Not Resolved]
  - Rash [Unknown]
  - Fatigue [Unknown]
  - Pancytopenia [Unknown]
